FAERS Safety Report 8207311-2 (Version None)
Quarter: 2012Q1

REPORT INFORMATION
  Report Type: 
  Country: None (occurrence: None)
  Receive Date: 20120314
  Receipt Date: 20120309
  Transmission Date: 20120608
  Serious: No
  Sender: FDA-Public Use
  Company Number: US-PFIZER INC-2012063508

PATIENT
  Sex: Male
  Weight: 79.365 kg

DRUGS (8)
  1. NORVASC [Concomitant]
     Indication: OESOPHAGEAL SPASM
     Dosage: 5 MG, 2X/DAY
  2. ADDERALL 5 [Concomitant]
     Indication: SLEEP APNOEA SYNDROME
     Dosage: 5 MG, 2X/DAY
  3. POLYETHYLENE GLYCOL [Concomitant]
     Indication: CONSTIPATION
     Dosage: 17 G, DAILY
  4. CRESTOR [Concomitant]
     Indication: BLOOD CHOLESTEROL INCREASED
     Dosage: 10 MG, DAILY
  5. EFFEXOR [Concomitant]
     Indication: DEPRESSION
     Dosage: 37.5 MG, DAILY
  6. VORICONAZOLE [Suspect]
     Indication: FUNGAL INFECTION
     Dosage: UNK
     Dates: end: 20111201
  7. VFEND [Suspect]
     Indication: FUNGAL INFECTION
     Dosage: 200 MG, 2X/DAY
     Dates: start: 20111226
  8. ALTACE [Concomitant]
     Indication: ECHOGRAPHY ABNORMAL
     Dosage: 2.5 MG, DAILY

REACTIONS (3)
  - PAIN [None]
  - RASH [None]
  - OEDEMA PERIPHERAL [None]
